FAERS Safety Report 8917507 (Version 1)
Quarter: 2012Q4

REPORT INFORMATION
  Report Type: 
  Country: US (occurrence: US)
  Receive Date: 20121120
  Receipt Date: 20121120
  Transmission Date: 20130627
  Serious: Yes (Death)
  Sender: FDA-Public Use
  Company Number: US-ASTRAZENECA-2012SE87370

PATIENT
  Age: 65 Year
  Sex: Female

DRUGS (1)
  1. BRILINTA [Suspect]
     Indication: PROPHYLAXIS
     Route: 048

REACTIONS (2)
  - Death [Fatal]
  - Platelet function test abnormal [Unknown]
